FAERS Safety Report 9627422 (Version 2)
Quarter: 2013Q4

REPORT INFORMATION
  Report Type: Not Available
  Country: US (occurrence: US)
  Receive Date: 20131016
  Receipt Date: 20131016
  Transmission Date: 20140711
  Serious: Yes (Other)
  Sender: FDA-Public Use
  Company Number: US-LUNDBECK-DKLU1087546

PATIENT
  Sex: Male
  Weight: 12.3 kg

DRUGS (59)
  1. SABRIL (TABLET) [Suspect]
     Indication: EPILEPSY
     Route: 048
     Dates: start: 2012
  2. SABRIL (TABLET) [Suspect]
     Indication: EPILEPSY
     Route: 048
     Dates: start: 2012
  3. SABRIL (TABLET) [Suspect]
     Route: 048
     Dates: start: 20121206
  4. SABRIL (TABLET) [Suspect]
     Route: 048
     Dates: start: 20121206
  5. SABRIL (TABLET) [Suspect]
     Route: 048
     Dates: start: 20121214
  6. SABRIL (TABLET) [Suspect]
     Route: 048
     Dates: start: 2012
  7. SABRIL (TABLET) [Suspect]
  8. SABRIL (TABLET) [Suspect]
     Route: 048
  9. SABRIL (TABLET) [Suspect]
  10. SABRIL (TABLET) [Suspect]
  11. LUMINAL [Suspect]
     Indication: PRODUCT USED FOR UNKNOWN INDICATION
  12. LUMINAL [Suspect]
  13. LUMINAL [Suspect]
  14. LUMINAL [Suspect]
  15. LUMINAL [Suspect]
  16. LUMINAL [Suspect]
  17. LUMINAL [Suspect]
  18. LUMINAL [Suspect]
  19. LUMINAL [Suspect]
  20. LUMINAL [Suspect]
  21. LUMINAL [Suspect]
  22. LUMINAL [Suspect]
  23. LUMINAL [Suspect]
  24. LUMINAL [Suspect]
  25. LUMINAL [Suspect]
  26. LUMINAL [Suspect]
  27. LUMINAL [Suspect]
  28. LUMINAL [Suspect]
  29. LUMINAL [Suspect]
  30. LUMINAL [Suspect]
  31. LUMINAL [Suspect]
  32. LUMINAL [Suspect]
  33. LUMINAL [Suspect]
  34. LUMINAL [Suspect]
  35. LUMINAL [Suspect]
  36. LUMINAL [Suspect]
     Dates: start: 20121203
  37. LUMINAL [Suspect]
     Dates: start: 2012
  38. LUMINAL [Suspect]
     Dates: start: 2012
  39. DIASTAT [Concomitant]
     Indication: PRODUCT USED FOR UNKNOWN INDICATION
     Route: 050
  40. DIVALPROEX [Concomitant]
     Indication: PRODUCT USED FOR UNKNOWN INDICATION
  41. DIVALPROEX [Concomitant]
  42. DIVALPROEX [Concomitant]
  43. DIVALPROEX [Concomitant]
  44. LORAZEPAM [Concomitant]
     Indication: PRODUCT USED FOR UNKNOWN INDICATION
     Route: 048
  45. VITAMIN D3 [Concomitant]
     Indication: PRODUCT USED FOR UNKNOWN INDICATION
  46. KLONOPIN [Concomitant]
     Indication: PRODUCT USED FOR UNKNOWN INDICATION
     Route: 048
  47. KLONOPIN [Concomitant]
  48. KEPPRA [Concomitant]
     Indication: PRODUCT USED FOR UNKNOWN INDICATION
     Route: 048
  49. KEPPRA [Concomitant]
     Route: 048
  50. KEPPRA [Concomitant]
     Route: 048
  51. MIRALAX [Concomitant]
     Indication: PRODUCT USED FOR UNKNOWN INDICATION
     Route: 048
  52. VITAMIN B-6 [Concomitant]
     Indication: PRODUCT USED FOR UNKNOWN INDICATION
     Route: 048
  53. XOPENEX [Concomitant]
     Indication: INHALATION THERAPY
  54. XOPENEX [Concomitant]
     Indication: DYSPNOEA
     Route: 050
  55. CARNITOR [Concomitant]
     Indication: PRODUCT USED FOR UNKNOWN INDICATION
     Route: 048
  56. ATROVENT [Concomitant]
     Indication: INCREASED BRONCHIAL SECRETION
     Route: 050
  57. PULMICORT [Concomitant]
     Indication: BRONCHIECTASIS
  58. PULMICORT [Concomitant]
     Indication: INHALATION THERAPY
  59. ZANTAC [Concomitant]
     Indication: PRODUCT USED FOR UNKNOWN INDICATION

REACTIONS (1)
  - Convulsion [Unknown]
